FAERS Safety Report 8922924 (Version 1)
Quarter: 2012Q4

REPORT INFORMATION
  Report Type: Spontaneous
  Country: US (occurrence: None)
  Receive Date: 20121115
  Receipt Date: 20121115
  Transmission Date: 20130627
  Serious: Yes (Hospitalization)
  Sender: FDA-Public Use
  Company Number: IMP_06076_2012

PATIENT
  Age: 52 Year
  Sex: Female

DRUGS (1)
  1. BACLOFEN [Suspect]
     Indication: PRODUCT USED FOR UNKNOWN INDICATION
     Dosage: 12 DF 1x, not the prescribed dose

REACTIONS (9)
  - Overdose [None]
  - Mental disorder [None]
  - Hypertension [None]
  - Agitation [None]
  - Somnolence [None]
  - Hypotonia [None]
  - Hyporeflexia [None]
  - Metabolic encephalopathy [None]
  - Disorientation [None]
